FAERS Safety Report 5933776-2 (Version None)
Quarter: 2008Q4

REPORT INFORMATION
  Report Type: 
  Country: None (occurrence: None)
  Receive Date: 20081024
  Receipt Date: 20081006
  Transmission Date: 20090506
  Serious: Yes (Death)
  Sender: FDA-Public Use
  Company Number: 1-16745301

PATIENT
  Age: 53 Year
  Sex: Female

DRUGS (6)
  1. AMIODARONE HCL [Suspect]
     Indication: ATRIAL FIBRILLATION
     Dosage: 600 MG, ONCE, INTRAVENOUS
     Route: 042
  2. POTASSIUM PERCHLORATE SOLUTION [Concomitant]
  3. THIAMAZOL [Concomitant]
  4. SUFENTANIL CITRATE [Concomitant]
  5. ETOMIDATE [Concomitant]
  6. ROCURONIUM BROMIDE [Concomitant]

REACTIONS (3)
  - HYPERTHYROIDISM [None]
  - MEAN ARTERIAL PRESSURE DECREASED [None]
  - VENTRICULAR FIBRILLATION [None]
